FAERS Safety Report 21075920 (Version 2)
Quarter: 2022Q3

REPORT INFORMATION
  Report Type: Report from Study
  Country: US (occurrence: US)
  Receive Date: 20220713
  Receipt Date: 20220921
  Transmission Date: 20221027
  Serious: Yes (Other)
  Sender: FDA-Public Use
  Company Number: US-TAKEDA-US201400387

PATIENT
  Age: 2 Year
  Sex: Male

DRUGS (2)
  1. IDURSULFASE [Suspect]
     Active Substance: IDURSULFASE
     Indication: Mucopolysaccharidosis II
     Dosage: 12 MILLIGRAM, 1/WEEK
     Route: 041
     Dates: start: 20140204
  2. IDURSULFASE [Suspect]
     Active Substance: IDURSULFASE
     Dosage: UNK UNK, 1/WEEK
     Route: 042
     Dates: start: 20140204

REACTIONS (7)
  - Generalised tonic-clonic seizure [Unknown]
  - Seizure [Unknown]
  - Surgery [Unknown]
  - Respiratory syncytial virus infection [Recovering/Resolving]
  - Complication associated with device [Unknown]
  - Central venous catheterisation [Unknown]
  - Pallor [Unknown]

NARRATIVE: CASE EVENT DATE: 20140304
